FAERS Safety Report 6020461-4 (Version None)
Quarter: 2008Q4

REPORT INFORMATION
  Report Type: 
  Country: None (occurrence: None)
  Receive Date: 20081222
  Receipt Date: 20081205
  Transmission Date: 20090506
  Serious: Yes (Other)
  Sender: FDA-Public Use
  Company Number: 2008-1801

PATIENT
  Sex: Female

DRUGS (2)
  1. SOMETULINE AUTOGEL 120MG (LANREOTIDE ACETATE) (LANREOTIDE ACETATE) [Suspect]
     Indication: PRIMITIVE NEUROECTODERMAL TUMOUR
     Dosage: NOT REPORTED (120 MG, NOT REPORTED)
     Route: 058
  2. WARFARIN SODIUM [Suspect]
     Dosage: NOT REPORTED

REACTIONS (2)
  - DRUG INTERACTION [None]
  - INTERNATIONAL NORMALISED RATIO INCREASED [None]
